FAERS Safety Report 4834747-X (Version None)
Quarter: 2005Q4

REPORT INFORMATION
  Report Type: 
  Country: None (occurrence: None)
  Receive Date: 20051122
  Receipt Date: 20050816
  Transmission Date: 20060501
  Serious: No
  Sender: FDA-Public Use
  Company Number: US-BRISTOL-MYERS SQUIBB COMPANY-13079686

PATIENT
  Age: 65 Year
  Sex: Male
  Weight: 82 kg

DRUGS (4)
  1. PRAVACHOL [Suspect]
     Dosage: HALF OF A 40 MG TABLET
  2. POTASSIUM CHLORIDE [Concomitant]
  3. MOBIC [Concomitant]
  4. VITAMIN [Concomitant]

REACTIONS (1)
  - PHOTOSENSITIVITY REACTION [None]
